FAERS Safety Report 12841138 (Version 2)
Quarter: 2016Q4

REPORT INFORMATION
  Report Type: Spontaneous
  Country: IT (occurrence: IT)
  Receive Date: 20161012
  Receipt Date: 20161019
  Transmission Date: 20170207
  Serious: Yes (Other)
  Sender: FDA-Public Use
  Company Number: IT-MYLANLABS-2016M1043399

PATIENT

DRUGS (2)
  1. RITUXIMAB [Concomitant]
     Active Substance: RITUXIMAB
     Indication: MANTLE CELL LYMPHOMA STAGE IV
     Route: 065
  2. CYTARABINE. [Suspect]
     Active Substance: CYTARABINE
     Indication: ACUTE MYELOID LEUKAEMIA
     Dosage: TOTAL DOSE: 24.000MG
     Route: 065

REACTIONS (5)
  - Acute respiratory distress syndrome [Unknown]
  - Pneumonia [Unknown]
  - Geotrichum infection [Recovering/Resolving]
  - Neutropenia [Unknown]
  - Shock [Unknown]
